FAERS Safety Report 6059183-2 (Version None)
Quarter: 2009Q1

REPORT INFORMATION
  Report Type: 
  Country: None (occurrence: None)
  Receive Date: 20090128
  Receipt Date: 20090120
  Transmission Date: 20090719
  Serious: Yes (Disabling, Other)
  Sender: FDA-Public Use
  Company Number: GXKR2008GB11576

PATIENT
  Age: 85 Year
  Sex: Male

DRUGS (11)
  1. SIMVASTATIN [Suspect]
     Indication: ATRIAL FIBRILLATION
     Dosage: 40 MG, ORAL
     Route: 048
     Dates: end: 20081101
  2. VERAPAMIL [Suspect]
     Indication: ATRIAL FIBRILLATION
     Dosage: 40 MG, TID, ORAL
     Route: 048
     Dates: start: 20081001
  3. PANADEINE (CODEINE PHOSPHATE, PARACETAMOL) [Suspect]
     Dosage: 2 MG,
  4. ACETYLSALICYLIC ACID SRT [Concomitant]
  5. BRIMONIDINE (BRIMONIDINE) [Concomitant]
  6. CODEINE PHOSPHATE AND ACETAMINOPHEN [Concomitant]
  7. FUROSEMIDE (FUROSEMIDE) [Concomitant]
  8. LISINOPRIL [Concomitant]
  9. QVAR [Concomitant]
  10. SALBUTAMOL (SALBUTAMOL) [Concomitant]
  11. SALMETEROL (SALMETEROL) [Concomitant]

REACTIONS (3)
  - BLOOD CREATINE PHOSPHOKINASE INCREASED [None]
  - HYPOKINESIA [None]
  - MYOSITIS [None]
